FAERS Safety Report 9901223 (Version 2)
Quarter: 2014Q1

REPORT INFORMATION
  Report Type: Report from Study
  Country: US (occurrence: US)
  Receive Date: 20140217
  Receipt Date: 20140217
  Transmission Date: 20141002
  Serious: Yes (Hospitalization, Other)
  Sender: FDA-Public Use
  Company Number: US-ROCHE-1267463

PATIENT
  Age: 3 Year
  Sex: Male
  Weight: 12 kg

DRUGS (21)
  1. NUTROPIN AQ [Suspect]
     Indication: RENAL FAILURE
     Route: 058
  2. NUTROPIN AQ [Suspect]
     Indication: RENAL FAILURE CHRONIC
     Route: 058
  3. KAYEXALATE [Concomitant]
     Route: 065
  4. FOLIC ACID [Concomitant]
     Route: 048
  5. NADOLOL [Concomitant]
     Route: 065
  6. PREVACID [Concomitant]
     Route: 048
  7. RENVELA [Concomitant]
     Route: 065
  8. LEVOCARNITINE [Concomitant]
     Dosage: 1 GM/10 ML
     Route: 065
  9. RIBOFLAVIN [Concomitant]
     Route: 048
  10. FUROSEMIDE [Concomitant]
     Dosage: 10 MG/ML
     Route: 065
  11. SODIUM CHLORIDE [Concomitant]
     Dosage: 16 MEQ TID-QID
     Route: 065
  12. COENZYME Q [Concomitant]
     Route: 065
  13. THIAMIN [Concomitant]
     Route: 065
  14. BENADRYL (UNITED STATES) [Concomitant]
     Route: 065
  15. ZEMPLAR [Concomitant]
     Route: 065
  16. ZEMPLAR [Concomitant]
     Route: 065
  17. VENOFER [Concomitant]
     Route: 065
  18. VENOFER [Concomitant]
     Route: 065
  19. NORVASC [Concomitant]
     Route: 048
  20. EPOGEN [Concomitant]
     Route: 065
     Dates: start: 20131021
  21. MANNITOL [Concomitant]
     Dosage: 12.5 G DURING DIALYSIS
     Route: 065

REACTIONS (6)
  - Cardiac failure [Unknown]
  - Vitamin D decreased [Unknown]
  - Hyperkalaemia [Unknown]
  - Hyponatraemia [Unknown]
  - Drug dose omission [Unknown]
  - Device malfunction [Unknown]
